FAERS Safety Report 6795715-4 (Version None)
Quarter: 2010Q2

REPORT INFORMATION
  Report Type: 
  Country: None (occurrence: None)
  Receive Date: 20100622
  Receipt Date: 20100607
  Transmission Date: 20101027
  Serious: Yes (Hospitalization)
  Sender: FDA-Public Use
  Company Number: 2010AL003337

PATIENT
  Age: 32 Year
  Sex: Male

DRUGS (1)
  1. RISPERDONE [Suspect]
     Dosage: 9 MG; QD;
     Dates: start: 20040601

REACTIONS (1)
  - NEUROLEPTIC MALIGNANT SYNDROME [None]
